FAERS Safety Report 6913179-4 (Version None)
Quarter: 2010Q3

REPORT INFORMATION
  Report Type: 
  Country: None (occurrence: None)
  Receive Date: 20100806
  Receipt Date: 20100625
  Transmission Date: 20110219
  Serious: Yes (Other)
  Sender: FDA-Public Use
  Company Number: US-PFIZER INC-2009171867

PATIENT
  Sex: Male

DRUGS (5)
  1. DILANTIN [Suspect]
     Indication: CONVULSION PROPHYLAXIS
     Dosage: 100 MG, 3X/DAY
     Dates: start: 20030626, end: 20030626
  2. DILANTIN [Suspect]
     Dosage: 150MG TWICE AND 100MG
     Dates: start: 20100627, end: 20100627
  3. DILANTIN [Suspect]
     Dosage: 150MG TWICE AND 100MG ONCE
     Dates: start: 20030627
  4. PHENOBARBITAL [Concomitant]
  5. NYQUIL [Concomitant]
     Dosage: UNK

REACTIONS (1)
  - STEVENS-JOHNSON SYNDROME [None]
